FAERS Safety Report 6343750-2 (Version None)
Quarter: 2009Q3

REPORT INFORMATION
  Report Type: 
  Country: None (occurrence: None)
  Receive Date: 20090908
  Receipt Date: 20090901
  Transmission Date: 20100115
  Serious: Yes (Hospitalization)
  Sender: FDA-Public Use
  Company Number: B0557078A

PATIENT
  Age: 77 Year
  Sex: Female

DRUGS (2)
  1. CLAMOXYL [Suspect]
     Route: 048
     Dates: start: 20081204, end: 20081204
  2. FLAGYL [Suspect]
     Route: 048
     Dates: start: 20081204, end: 20081204

REACTIONS (3)
  - ANGIOEDEMA [None]
  - GENERALISED ERYTHEMA [None]
  - MEDICATION ERROR [None]
